FAERS Safety Report 10214409 (Version 1)
Quarter: 2014Q2

REPORT INFORMATION
  Report Type: Spontaneous
  Country: US (occurrence: None)
  Receive Date: 20140602
  Receipt Date: 20140602
  Transmission Date: 20141212
  Serious: No
  Sender: FDA-Public Use
  Company Number: None

PATIENT
  Age: 64 Year
  Sex: Male
  Weight: 68.2 kg

DRUGS (2)
  1. LISINOPRIL [Suspect]
     Indication: PROPHYLAXIS
     Route: 030
     Dates: start: 20130919, end: 20130919
  2. INFLUENZA [Suspect]
     Route: 048
     Dates: end: 20130919

REACTIONS (2)
  - Swelling face [None]
  - Angioedema [None]
